FAERS Safety Report 15952642 (Version 1)
Quarter: 2019Q1

REPORT INFORMATION
  Report Type: Spontaneous
  Country: FR (occurrence: FR)
  Receive Date: 20190211
  Receipt Date: 20190211
  Transmission Date: 20190417
  Serious: Yes (Other)
  Sender: FDA-Public Use
  Company Number: PHHY2018FR182299

PATIENT
  Age: 47 Year
  Sex: Female
  Weight: 42 kg

DRUGS (2)
  1. EZETROL [Concomitant]
     Active Substance: EZETIMIBE
     Indication: HYPERCHOLESTEROLAEMIA
     Dosage: 10 MG, UNK
     Route: 048
     Dates: start: 20180328
  2. ACIDE ZOLEDRONIQUE SANDOZ [Suspect]
     Active Substance: ZOLEDRONIC ACID
     Indication: OSTEOPOROSIS POSTMENOPAUSAL
     Dosage: 5 MG, ONCE/SINGLE
     Route: 041
     Dates: start: 20181123, end: 20181123

REACTIONS (14)
  - Eye pruritus [Unknown]
  - Exophthalmos [Unknown]
  - Eye pain [Recovered/Resolved]
  - Photophobia [Unknown]
  - Abnormal sensation in eye [Unknown]
  - Eyelid irritation [Unknown]
  - Vision blurred [Not Recovered/Not Resolved]
  - Facial pain [Unknown]
  - Eyelid ptosis [Unknown]
  - Foreign body sensation in eyes [Unknown]
  - Eye irritation [Unknown]
  - Dry eye [Not Recovered/Not Resolved]
  - Headache [Unknown]
  - Eye inflammation [Unknown]

NARRATIVE: CASE EVENT DATE: 20181124
